FAERS Safety Report 5420745-4 (Version None)
Quarter: 2007Q3

REPORT INFORMATION
  Report Type: 
  Country: None (occurrence: None)
  Receive Date: 20070821
  Receipt Date: 20061004
  Transmission Date: 20080115
  Serious: Yes (Other)
  Sender: FDA-Public Use
  Company Number: US-BRISTOL-MYERS SQUIBB COMPANY-13532486

PATIENT
  Sex: Female

DRUGS (8)
  1. ESTRACE [Suspect]
     Indication: HORMONE REPLACEMENT THERAPY
     Dates: end: 20021001
  2. PREMARIN [Suspect]
     Indication: HORMONE REPLACEMENT THERAPY
     Dates: end: 20021001
  3. PROMETRIUM [Suspect]
     Indication: HORMONE REPLACEMENT THERAPY
     Dates: end: 20021001
  4. PROVERA [Suspect]
     Indication: HORMONE REPLACEMENT THERAPY
     Dates: end: 20021001
  5. MENEST [Suspect]
     Indication: HORMONE REPLACEMENT THERAPY
     Dates: end: 20021001
  6. ESTRATEST [Suspect]
     Indication: HORMONE REPLACEMENT THERAPY
     Dates: end: 20021001
  7. MEDROXYPROGESTERONE [Suspect]
     Indication: HORMONE REPLACEMENT THERAPY
     Dates: end: 20021001
  8. ESTROGEN [Suspect]
     Indication: HORMONE REPLACEMENT THERAPY
     Dates: end: 20021001

REACTIONS (1)
  - BREAST CANCER [None]
